FAERS Safety Report 24412588 (Version 1)
Quarter: 2024Q4

REPORT INFORMATION
  Report Type: Spontaneous
  Country: CA (occurrence: CA)
  Receive Date: 20241008
  Receipt Date: 20241008
  Transmission Date: 20250115
  Serious: Yes (Other)
  Sender: JOHNSON AND JOHNSON
  Company Number: CA-VIIV HEALTHCARE LIMITED-CA2023003784

PATIENT
  Age: 46 Year
  Sex: Male

DRUGS (4)
  1. RILPIVIRINE [Suspect]
     Active Substance: RILPIVIRINE
     Indication: HIV infection
     Dosage: UNK UNK, Q2M, (3ML/ 600MG, 3ML/ 900MG)
     Route: 030
     Dates: start: 20220816
  2. RILPIVIRINE [Suspect]
     Active Substance: RILPIVIRINE
     Dosage: UNK UNK, Q2M (600MG/3ML CABOTEGRAVIR/ 900MG/3ML RILPIVIRINE)
     Route: 030
  3. CABOTEGRAVIR [Suspect]
     Active Substance: CABOTEGRAVIR
     Indication: HIV infection
     Dosage: UNK UNK, Q2M, (3ML/ 600MG, 3ML/ 900MG)
     Route: 030
     Dates: start: 20220816
  4. CABOTEGRAVIR [Suspect]
     Active Substance: CABOTEGRAVIR
     Dosage: UNK UNK, Q2M (600MG/3ML CABOTEGRAVIR/ 900MG/3ML RILPIVIRINE)
     Route: 030

REACTIONS (13)
  - Pharyngeal haemorrhage [Unknown]
  - Movement disorder [Recovered/Resolved]
  - Anorectal infection [Unknown]
  - Exposure to communicable disease [Unknown]
  - Hypoaesthesia [Unknown]
  - Sensory loss [Recovered/Resolved]
  - Illness [Unknown]
  - Diarrhoea [Recovered/Resolved]
  - Headache [Unknown]
  - Dysgeusia [Unknown]
  - Palpitations [Unknown]
  - Dehydration [Unknown]
  - Lethargy [Unknown]

NARRATIVE: CASE EVENT DATE: 20240314
